FAERS Safety Report 5330275-6 (Version None)
Quarter: 2007Q2

REPORT INFORMATION
  Report Type: 
  Country: None (occurrence: None)
  Receive Date: 20070515
  Receipt Date: 20070507
  Transmission Date: 20071010
  Serious: Yes (Other)
  Sender: FDA-Public Use
  Company Number: US-GDP-0714586

PATIENT
  Age: 54 Year
  Sex: Female

DRUGS (2)
  1. METROGEL [Suspect]
     Indication: ROSACEA
     Dosage: 1 APP BID TP
     Route: 061
     Dates: start: 20030401, end: 20040901
  2. ALLEGRA D 24 HOUR [Concomitant]

REACTIONS (1)
  - NON-HODGKIN'S LYMPHOMA UNSPECIFIED HISTOLOGY INDOLENT [None]
